FAERS Safety Report 7020200-4 (Version None)
Quarter: 2010Q3

REPORT INFORMATION
  Report Type: 
  Country: None (occurrence: None)
  Receive Date: 20100929
  Receipt Date: 20100914
  Transmission Date: 20110219
  Serious: Yes (Hospitalization, Other)
  Sender: FDA-Public Use
  Company Number: PHHY2010CN53538

PATIENT
  Age: 30 Year
  Sex: Male

DRUGS (4)
  1. SEBIVO [Suspect]
     Indication: HEPATITIS B
     Dosage: UNK
     Route: 048
     Dates: start: 20090601, end: 20100805
  2. ENTECAVIR [Concomitant]
     Indication: HEPATITIS B
     Dosage: UNK
     Dates: start: 20070601, end: 20090601
  3. ENTECAVIR [Concomitant]
     Dosage: UNK
     Dates: start: 20100805
  4. SODIUM BICARBONATE [Concomitant]

REACTIONS (13)
  - ASPARTATE AMINOTRANSFERASE INCREASED [None]
  - BLOOD CREATINE PHOSPHOKINASE INCREASED [None]
  - BLOOD CREATINE PHOSPHOKINASE MB ABNORMAL [None]
  - BLOOD LACTATE DEHYDROGENASE INCREASED [None]
  - FATIGUE [None]
  - GASTRITIS [None]
  - HEPATITIS B DNA INCREASED [None]
  - INJECTION SITE SWELLING [None]
  - MALAISE [None]
  - MYALGIA [None]
  - MYOGLOBIN BLOOD INCREASED [None]
  - NAUSEA [None]
  - PAIN IN EXTREMITY [None]
